FAERS Safety Report 25678331 (Version 1)
Quarter: 2025Q3

REPORT INFORMATION
  Report Type: Spontaneous
  Country: CN (occurrence: CN)
  Receive Date: 20250813
  Receipt Date: 20250813
  Transmission Date: 20251020
  Serious: Yes (Other)
  Sender: JOHNSON AND JOHNSON
  Company Number: CN-JNJFOC-20250807994

PATIENT
  Age: 39 Year
  Sex: Female
  Weight: 64.5 kg

DRUGS (1)
  1. RISPERDAL [Suspect]
     Active Substance: RISPERIDONE
     Indication: Delusion
     Route: 048
     Dates: start: 20250721, end: 20250729

REACTIONS (4)
  - Blood gonadotrophin increased [Recovering/Resolving]
  - Breast mass [Recovering/Resolving]
  - Hyperprolactinaemia [Unknown]
  - Accessory breast [Unknown]

NARRATIVE: CASE EVENT DATE: 20250728
